FAERS Safety Report 8124519-5 (Version None)
Quarter: 2012Q1

REPORT INFORMATION
  Report Type: 
  Country: None (occurrence: None)
  Receive Date: 20120209
  Receipt Date: 20120206
  Transmission Date: 20120608
  Serious: Yes (Hospitalization, Other)
  Sender: FDA-Public Use
  Company Number: CN-BAYER-2012-011286

PATIENT
  Age: 66 Year
  Sex: Male

DRUGS (1)
  1. GLUCOBAY [Suspect]
     Indication: TYPE 2 DIABETES MELLITUS
     Dosage: UNK
     Route: 048
     Dates: start: 20100101, end: 20110201

REACTIONS (2)
  - HEPATITIS B VIRUS TEST POSITIVE [None]
  - TRANSAMINASES INCREASED [None]
